FAERS Safety Report 5772262-X (Version None)
Quarter: 2008Q2

REPORT INFORMATION
  Report Type: 
  Country: None (occurrence: None)
  Receive Date: 20080613
  Receipt Date: 20080602
  Transmission Date: 20081010
  Serious: Yes (Hospitalization)
  Sender: FDA-Public Use
  Company Number: PHHY2008JP08070

PATIENT
  Sex: Male

DRUGS (7)
  1. FASTIC [Suspect]
     Indication: DIABETES MELLITUS
     Dosage: 270 MG/DAY
     Route: 048
     Dates: start: 20080301, end: 20080501
  2. BASEN [Concomitant]
  3. ASPIRIN [Concomitant]
  4. LOCHOL [Concomitant]
  5. HERBESSER ^DELTA^ [Concomitant]
     Indication: HYPERTENSION
  6. FAMOTIDINE [Concomitant]
  7. PLETAL [Concomitant]
     Indication: ANGINA PECTORIS

REACTIONS (4)
  - ERYTHEMA MULTIFORME [None]
  - LABORATORY TEST INTERFERENCE [None]
  - PYREXIA [None]
  - RASH [None]
